FAERS Safety Report 11975694 (Version 2)
Quarter: 2016Q1

REPORT INFORMATION
  Report Type: Report from Study
  Country: ZA (occurrence: ZA)
  Receive Date: 20160129
  Receipt Date: 20160206
  Transmission Date: 20160526
  Serious: Yes (Death, Hospitalization, Other)
  Sender: FDA-Public Use
  Company Number: ZA-AMGEN-ZAFSL2016008556

PATIENT
  Age: 90 Year
  Sex: Male

DRUGS (1)
  1. ARANESP [Suspect]
     Active Substance: DARBEPOETIN ALFA
     Indication: NEPHROGENIC ANAEMIA
     Dosage: 200 UNK, QWK
     Route: 058
     Dates: end: 20160118

REACTIONS (5)
  - Deep vein thrombosis [Fatal]
  - Haemorrhage [Unknown]
  - Myocardial infarction [Fatal]
  - Cardiovascular disorder [Unknown]
  - Hypotension [Unknown]
